FAERS Safety Report 5508396-4 (Version None)
Quarter: 2007Q4

REPORT INFORMATION
  Report Type: 
  Country: None (occurrence: None)
  Receive Date: 20071107
  Receipt Date: 20071030
  Transmission Date: 20080405
  Serious: Yes (Other)
  Sender: FDA-Public Use
  Company Number: PHNU2007DE03625

PATIENT
  Sex: Female

DRUGS (1)
  1. TRILEPTAL [Suspect]
     Indication: FACIAL PAIN
     Dosage: 90 MG/D
     Route: 048
     Dates: start: 20070101, end: 20070101

REACTIONS (2)
  - DEPRESSED MOOD [None]
  - DRUG WITHDRAWAL SYNDROME [None]
